FAERS Safety Report 4305156-7 (Version None)
Quarter: 2004Q1

REPORT INFORMATION
  Report Type: 
  Country: None (occurrence: None)
  Receive Date: 20040225
  Receipt Date: 20040225
  Transmission Date: 20041129
  Serious: Yes (Hospitalization)
  Sender: FDA-Public Use
  Company Number: None

PATIENT
  Sex: Female

DRUGS (11)
  1. IMMUNE GLOBULIN INTRAVENOUS (HUMAN) [Suspect]
     Indication: CHRONIC INFLAMMATORY DEMYELINATING POLYRADICULONEUROPATHY
     Dosage: 96G IV X 1
     Route: 042
     Dates: start: 20031104, end: 20031106
  2. ACETAMINOPHEN [Concomitant]
  3. ALBUTEROL [Concomitant]
  4. ASPIRIN [Concomitant]
  5. DIPHENHYDRAMINE HCL [Concomitant]
  6. GABAPENTIN [Concomitant]
  7. HEPARIN [Concomitant]
  8. IPRATROPIUM BROMIDE [Concomitant]
  9. M.V.I. [Concomitant]
  10. MAGNESIUM CHLORIDE [Concomitant]
  11. LOSARTAN [Concomitant]

REACTIONS (6)
  - ATRIAL FIBRILLATION [None]
  - BLOOD PRESSURE DIASTOLIC DECREASED [None]
  - OXYGEN SATURATION DECREASED [None]
  - PULMONARY OEDEMA [None]
  - RENAL FAILURE ACUTE [None]
  - RESPIRATORY RATE INCREASED [None]
